FAERS Safety Report 6584886-0 (Version None)
Quarter: 2010Q1

REPORT INFORMATION
  Report Type: 
  Country: None (occurrence: None)
  Receive Date: 20100204
  Receipt Date: 20100121
  Transmission Date: 20100710
  Serious: No
  Sender: FDA-Public Use
  Company Number: 005388

PATIENT
  Sex: Female
  Weight: 59.8 kg

DRUGS (12)
  1. KEPPRA [Suspect]
     Indication: CONVULSION
     Dosage: 500 MG, 500 MG EVERY OTHER DAY ORAL, 500 MG QD ORAL, ORAL, 2000 MG BID ORAL
     Route: 048
     Dates: start: 20090101, end: 20090701
  2. KEPPRA [Suspect]
     Indication: CONVULSION
     Dosage: 500 MG, 500 MG EVERY OTHER DAY ORAL, 500 MG QD ORAL, ORAL, 2000 MG BID ORAL
     Route: 048
     Dates: start: 20090701, end: 20090701
  3. KEPPRA [Suspect]
     Indication: CONVULSION
     Dosage: 500 MG, 500 MG EVERY OTHER DAY ORAL, 500 MG QD ORAL, ORAL, 2000 MG BID ORAL
     Route: 048
     Dates: start: 20100101, end: 20100120
  4. KEPPRA [Suspect]
     Indication: CONVULSION
     Dosage: 500 MG, 500 MG EVERY OTHER DAY ORAL, 500 MG QD ORAL, ORAL, 2000 MG BID ORAL
     Route: 048
     Dates: start: 20100120
  5. CLONAZEPAM [Suspect]
     Indication: CONVULSION
     Dosage: ORAL
     Route: 048
     Dates: start: 20090701, end: 20090801
  6. LORAZEPAM [Concomitant]
  7. PAROXETINE HCL [Concomitant]
  8. CALTRATE [Concomitant]
  9. CITRUCEL [Concomitant]
  10. OMEPRAZOLE [Concomitant]
  11. NASACORT [Concomitant]
  12. ASTELIN [Concomitant]

REACTIONS (3)
  - ACTIVITIES OF DAILY LIVING IMPAIRED [None]
  - ASTHENIA [None]
  - TREMOR [None]
